FAERS Safety Report 13384810 (Version 1)
Quarter: 2017Q1

REPORT INFORMATION
  Report Type: Spontaneous
  Country: US (occurrence: US)
  Receive Date: 20170329
  Receipt Date: 20170329
  Transmission Date: 20170429
  Serious: Yes (Other)
  Sender: FDA-Public Use
  Company Number: None

PATIENT
  Age: 41 Year
  Sex: Female
  Weight: 57.66 kg

DRUGS (7)
  1. MIRENA [Suspect]
     Active Substance: LEVONORGESTREL
     Indication: CONTRACEPTION
     Route: 067
     Dates: start: 20161207, end: 20170328
  2. CELEXA [Concomitant]
     Active Substance: CITALOPRAM HYDROBROMIDE
  3. MIRENA [Suspect]
     Active Substance: LEVONORGESTREL
     Indication: DYSMENORRHOEA
     Route: 067
     Dates: start: 20161207, end: 20170328
  4. BUDESONIDE. [Concomitant]
     Active Substance: BUDESONIDE
  5. NORCO [Concomitant]
     Active Substance: ACETAMINOPHEN\HYDROCODONE BITARTRATE
  6. LORAZEPAM. [Concomitant]
     Active Substance: LORAZEPAM
  7. ARMOUR THYROID [Concomitant]
     Active Substance: THYROID, PORCINE

REACTIONS (12)
  - Asthenia [None]
  - Cardiac disorder [None]
  - Fatigue [None]
  - Haemorrhage [None]
  - Nausea [None]
  - Migraine [None]
  - Vision blurred [None]
  - Insomnia [None]
  - Hypotension [None]
  - Bacterial vaginosis [None]
  - Pain in extremity [None]
  - Palpitations [None]

NARRATIVE: CASE EVENT DATE: 20170328
